FAERS Safety Report 5341248-1 (Version None)
Quarter: 2007Q2

REPORT INFORMATION
  Report Type: 
  Country: None (occurrence: None)
  Receive Date: 20070530
  Receipt Date: 20070517
  Transmission Date: 20071010
  Serious: Yes (Hospitalization)
  Sender: FDA-Public Use
  Company Number: TPA2007A01026

PATIENT
  Age: 86 Year
  Sex: Male
  Weight: 79.3795 kg

DRUGS (6)
  1. ACTOS [Suspect]
     Indication: DIABETES MELLITUS
     Dosage: 45 MG, 1 IN 1 D, PER ORAL
     Route: 048
     Dates: start: 20030101
  2. GLYBURIDE [Concomitant]
  3. FLUOXETINE [Concomitant]
  4. LOVASTATIN [Concomitant]
  5. METFORMIN HCL [Concomitant]
  6. LISINOPRIL [Concomitant]

REACTIONS (4)
  - FALL [None]
  - HAEMORRHAGE [None]
  - HEAD INJURY [None]
  - HEARING IMPAIRED [None]
